FAERS Safety Report 24442317 (Version 1)
Quarter: 2024Q4

REPORT INFORMATION
  Report Type: Spontaneous
  Country: US (occurrence: US)
  Receive Date: 20241016
  Receipt Date: 20241016
  Transmission Date: 20250114
  Serious: Yes (Hospitalization, Other)
  Sender: LUPIN
  Company Number: US-LUPIN PHARMACEUTICALS INC.-2024-10050

PATIENT
  Age: 50 Year
  Sex: Female

DRUGS (2)
  1. OXYCODONE [Suspect]
     Active Substance: OXYCODONE
     Indication: Myelopathy
     Dosage: 5 MILLIGRAM, AS NEEDED (20 MORPHINE MILI-EQUIVALENTS)
     Route: 065
  2. HYDROMORPHONE [Suspect]
     Active Substance: HYDROMORPHONE
     Indication: Analgesic therapy
     Dosage: 4 MILLIGRAM,AS NEEDED (196 MORPHINE MILI-EQUIVALENTS)
     Route: 065

REACTIONS (5)
  - Aspiration [Recovering/Resolving]
  - Staphylococcal infection [Recovering/Resolving]
  - Empyema [Recovering/Resolving]
  - Pneumothorax [Recovering/Resolving]
  - Off label use [Unknown]
